FAERS Safety Report 8246421-0 (Version None)
Quarter: 2012Q1

REPORT INFORMATION
  Report Type: 
  Country: None (occurrence: None)
  Receive Date: 20120330
  Receipt Date: 20120323
  Transmission Date: 20120608
  Serious: Yes (Hospitalization)
  Sender: FDA-Public Use
  Company Number: NL-AMGEN-NLDSP2012017033

PATIENT
  Age: 67 Year
  Sex: Female
  Weight: 69 kg

DRUGS (6)
  1. PROLIA [Suspect]
     Indication: OSTEOPOROSIS
     Dosage: 60 MG, Q6MO
     Dates: start: 20111023
  2. SELENIUM [Concomitant]
     Indication: HYPERTENSION
     Dosage: 100 MG, QD
     Route: 048
     Dates: start: 20050101
  3. SPIRIVA [Concomitant]
     Indication: CHRONIC OBSTRUCTIVE PULMONARY DISEASE
     Dosage: 18 MUG, QD
  4. SYMBICORT [Concomitant]
     Indication: CHRONIC OBSTRUCTIVE PULMONARY DISEASE
     Dosage: UNK
     Dates: start: 20040101
  5. PROLIA [Suspect]
     Dosage: 60 MG/ML, Q6MO
     Route: 030
     Dates: start: 20111112
  6. PANTOPRAZOLE [Concomitant]
     Indication: GASTRITIS
     Dosage: 40 MG, QD
     Route: 048
     Dates: start: 20070101

REACTIONS (2)
  - INJECTION SITE ANAESTHESIA [None]
  - THERAPEUTIC PROCEDURE [None]
